FAERS Safety Report 4606597-0 (Version None)
Quarter: 2005Q2

REPORT INFORMATION
  Report Type: 
  Country: None (occurrence: None)
  Receive Date: 20050223
  Receipt Date: 20040519
  Transmission Date: 20051028
  Serious: Yes (Other)
  Sender: FDA-Public Use
  Company Number: WAES 0405USA01487

PATIENT
  Age: 65 Year
  Sex: Male
  Weight: 96.1626 kg

DRUGS (5)
  1. ZOCOR [Suspect]
     Dosage: 20 MG/HS/PO
     Route: 048
     Dates: start: 20030101, end: 20031106
  2. PNEUMOVAX (PNEUMOCOCCAL 14V POLY [Concomitant]
  3. LISINOPRIL [Concomitant]
  4. RABEPRAZOLE SODIUM [Concomitant]
  5. RANITIDINE [Concomitant]

REACTIONS (6)
  - ARTHRALGIA [None]
  - BACK PAIN [None]
  - EAR PAIN [None]
  - GYNAECOMASTIA [None]
  - MEDICATION ERROR [None]
  - VISUAL ACUITY REDUCED [None]
